FAERS Safety Report 6977123-6 (Version None)
Quarter: 2010Q3

REPORT INFORMATION
  Report Type: 
  Country: None (occurrence: None)
  Receive Date: 20100910
  Receipt Date: 20100907
  Transmission Date: 20110219
  Serious: Yes (Death)
  Sender: FDA-Public Use
  Company Number: JP-SANOFI-AVENTIS-2010SA053671

PATIENT
  Age: 71 Year
  Sex: Male
  Weight: 50 kg

DRUGS (13)
  1. PLAVIX [Suspect]
     Route: 048
     Dates: start: 20100525, end: 20100525
  2. PLAVIX [Suspect]
     Route: 048
     Dates: start: 20100526, end: 20100610
  3. ASPIRIN [Concomitant]
     Route: 048
     Dates: start: 20100525, end: 20100610
  4. HEPARIN SODIUM [Concomitant]
     Dosage: DOSE:5000 UNIT(S)
     Route: 042
     Dates: start: 20100525, end: 20100525
  5. TAKEPRON [Concomitant]
     Indication: PROPHYLAXIS
     Route: 048
     Dates: start: 20100525, end: 20100610
  6. PLETAL [Concomitant]
     Route: 048
     Dates: start: 20100525, end: 20100525
  7. CRESTOR [Concomitant]
     Route: 048
     Dates: start: 20100525, end: 20100610
  8. AMIODARONE [Concomitant]
     Route: 048
     Dates: start: 20100530, end: 20100531
  9. ALDACTONE [Concomitant]
     Indication: CARDIAC FAILURE
     Route: 048
     Dates: start: 20100603, end: 20100610
  10. ALDACTONE [Concomitant]
     Route: 048
     Dates: start: 20100603, end: 20100610
  11. ASPARA K [Concomitant]
     Route: 048
     Dates: start: 20100603, end: 20100610
  12. DALTEPARIN SODIUM [Concomitant]
     Dosage: DOSE:5000 UNIT(S)
     Route: 051
     Dates: start: 20100525, end: 20100610
  13. SIGMART [Concomitant]
     Route: 051
     Dates: start: 20100525, end: 20100530

REACTIONS (1)
  - CARDIOGENIC SHOCK [None]
